FAERS Safety Report 5806416-0 (Version None)
Quarter: 2008Q3

REPORT INFORMATION
  Report Type: 
  Country: None (occurrence: None)
  Receive Date: 20080710
  Receipt Date: 20080701
  Transmission Date: 20090109
  Serious: Yes (Hospitalization)
  Sender: FDA-Public Use
  Company Number: DE-PFIZER INC-2008036811

PATIENT
  Age: 38 Year
  Sex: Male

DRUGS (3)
  1. SORTIS [Suspect]
     Dosage: DAILY DOSE:10MG
     Route: 048
     Dates: start: 20080221, end: 20080228
  2. ERYTHROMYCIN [Concomitant]
     Route: 048
     Dates: start: 20080305, end: 20080312
  3. ROCEPHIN [Concomitant]
     Dosage: DAILY DOSE:2GRAM
     Route: 042
     Dates: start: 20080322, end: 20080325

REACTIONS (7)
  - BORRELIA BURGDORFERI SEROLOGY POSITIVE [None]
  - DIARRHOEA [None]
  - DIZZINESS [None]
  - MYALGIA [None]
  - PARAESTHESIA [None]
  - SOMATISATION DISORDER [None]
  - TENSION HEADACHE [None]
